FAERS Safety Report 10200280 (Version 8)
Quarter: 2016Q1

REPORT INFORMATION
  Report Type: Spontaneous
  Country: US (occurrence: US)
  Receive Date: 20140527
  Receipt Date: 20160121
  Transmission Date: 20160525
  Serious: Yes (Hospitalization, Other)
  Sender: FDA-Public Use
  Company Number: US-TEVA-483759USA

PATIENT
  Age: 69 Year
  Sex: Female
  Weight: 66.74 kg

DRUGS (5)
  1. COLECALCIFEROL [Concomitant]
     Active Substance: CHOLECALCIFEROL
     Indication: HYPOVITAMINOSIS
  2. TRAZODONE [Concomitant]
     Active Substance: TRAZODONE HYDROCHLORIDE
     Indication: ATTENTION DEFICIT/HYPERACTIVITY DISORDER
  3. ACETYLSALICYLIC ACID [Concomitant]
     Active Substance: ASPIRIN
  4. TRAZODONE [Concomitant]
     Active Substance: TRAZODONE HYDROCHLORIDE
     Indication: SLEEP DISORDER
  5. CARVEDILOL. [Suspect]
     Active Substance: CARVEDILOL
     Indication: CARDIAC FAILURE
     Route: 048
     Dates: start: 20140507, end: 20140507

REACTIONS (24)
  - Atrial fibrillation [Unknown]
  - Back pain [Recovered/Resolved]
  - Dizziness [Unknown]
  - Sternal injury [Unknown]
  - Chronic obstructive pulmonary disease [Unknown]
  - Presyncope [Unknown]
  - Loss of consciousness [Recovered/Resolved]
  - Pneumonia [Unknown]
  - Pain [Unknown]
  - Hypertension [Unknown]
  - Delirium [Recovered/Resolved]
  - Dizziness [Not Recovered/Not Resolved]
  - Adverse event [Recovered/Resolved]
  - Syncope [Recovered/Resolved]
  - Foot fracture [Unknown]
  - Emotional distress [Not Recovered/Not Resolved]
  - Fall [Recovered/Resolved]
  - Mental impairment [Recovered/Resolved]
  - Chest pain [Not Recovered/Not Resolved]
  - Chest pain [Recovered/Resolved]
  - Anger [Unknown]
  - Crying [Unknown]
  - Fear [Unknown]
  - Fear [Not Recovered/Not Resolved]

NARRATIVE: CASE EVENT DATE: 20140507
